FAERS Safety Report 9508055 (Version 1)
Quarter: 2013Q3

REPORT INFORMATION
  Report Type: Report from Study
  Country: IL (occurrence: IL)
  Receive Date: 20130909
  Receipt Date: 20130909
  Transmission Date: 20140515
  Serious: Yes (Hospitalization)
  Sender: FDA-Public Use
  Company Number: IL-ROCHE-1269952

PATIENT
  Age: 73 Year
  Sex: Female

DRUGS (6)
  1. METHOXY POLYETHYLENE GLYCOL-EPOETIN BETA [Suspect]
     Indication: NEPHROGENIC ANAEMIA
     Route: 042
     Dates: start: 20090806
  2. PLAVIX [Concomitant]
     Route: 048
     Dates: start: 2006
  3. NORMOPRESAN [Concomitant]
     Indication: HYPERTENSION
     Route: 048
     Dates: start: 2006
  4. MONOCORDIL [Concomitant]
     Route: 048
     Dates: start: 2006
  5. CALTRATE [Concomitant]
     Route: 048
     Dates: start: 2008
  6. RENAGEL [Concomitant]
     Route: 048
     Dates: start: 2008

REACTIONS (1)
  - Chronic obstructive pulmonary disease [Recovered/Resolved with Sequelae]
